FAERS Safety Report 5569350-X (Version None)
Quarter: 2007Q4

REPORT INFORMATION
  Report Type: 
  Country: None (occurrence: None)
  Receive Date: 20071220
  Receipt Date: 20071206
  Transmission Date: 20080405
  Serious: Yes (Death, Hospitalization, Other)
  Sender: FDA-Public Use
  Company Number: GB-ELI_LILLY_AND_COMPANY-GB200707004973

PATIENT
  Sex: Male
  Weight: 85 kg

DRUGS (12)
  1. GEMZAR [Suspect]
     Indication: NON-SMALL CELL LUNG CANCER
  2. CARBOPLATIN [Concomitant]
     Dosage: UNK, UNKNOWN
     Route: 065
  3. AMIODARONE [Concomitant]
     Dosage: UNK, UNKNOWN
     Route: 065
     Dates: start: 19970101
  4. ALBUTEROL [Concomitant]
     Dosage: UNK, UNKNOWN
     Route: 065
  5. LISINOPRIL [Concomitant]
     Dosage: UNK, UNKNOWN
     Route: 065
  6. ASPIRIN [Concomitant]
     Dosage: UNK, UNKNOWN
     Route: 065
  7. SIMVASTATIN [Concomitant]
     Dosage: UNK, UNKNOWN
     Route: 065
  8. PREDNISOLONE [Concomitant]
     Dosage: 60 MG, UNK
     Route: 048
     Dates: start: 20070328
  9. OMEPRAZOLE [Concomitant]
     Dosage: 20 MG, UNK
     Route: 048
     Dates: start: 20070328
  10. MIDAZOLAM HCL [Concomitant]
     Indication: SEDATION
     Dosage: 2 MG, UNK
     Route: 042
     Dates: start: 20070329
  11. FENTANYL [Concomitant]
     Indication: SEDATION
     Dosage: 100 MG, UNK
     Route: 042
     Dates: start: 20070329
  12. SODIUM CHLORIDE 0.9% [Concomitant]
     Dosage: 20 ML 0.9 %, 4/D
     Dates: start: 20070329

REACTIONS (3)
  - MULTI-ORGAN FAILURE [None]
  - PNEUMONIA [None]
  - PULMONARY FIBROSIS [None]
